FAERS Safety Report 7768440-0 (Version None)
Quarter: 2011Q3

REPORT INFORMATION
  Report Type: 
  Country: None (occurrence: None)
  Receive Date: 20110922
  Receipt Date: 20110624
  Transmission Date: 20111222
  Serious: No
  Sender: FDA-Public Use
  Company Number: US-ASTRAZENECA-2009UW06720

PATIENT
  Age: 70 Year
  Sex: Female
  Weight: 54 kg

DRUGS (6)
  1. SEROQUEL [Suspect]
     Route: 048
     Dates: start: 20070101
  2. MORPHINE [Concomitant]
  3. VITAMIN B-12 [Concomitant]
  4. CLONAZEPAM [Concomitant]
  5. CYMBALTA [Concomitant]
  6. OXYCODONE HCL [Concomitant]

REACTIONS (8)
  - ASTHENIA [None]
  - PAIN [None]
  - FATIGUE [None]
  - VITAMIN B12 DEFICIENCY [None]
  - BONE PAIN [None]
  - CONFUSIONAL STATE [None]
  - HYPOACUSIS [None]
  - PAIN IN EXTREMITY [None]
